FAERS Safety Report 4414545-1 (Version None)
Quarter: 2004Q2

REPORT INFORMATION
  Report Type: 
  Country: None (occurrence: None)
  Receive Date: 20040630
  Receipt Date: 20030707
  Transmission Date: 20050107
  Serious: Yes (Hospitalization, Other)
  Sender: FDA-Public Use
  Company Number: 2003018383

PATIENT
  Age: 40 Year
  Sex: Female

DRUGS (2)
  1. ZOLOFT [Suspect]
     Indication: DEPRESSION
     Dosage: 50 MG, ORAL
     Route: 048
     Dates: start: 20030101, end: 20030501
  2. AL OTHER THERAPEUTIC PRODUCTS [Concomitant]

REACTIONS (4)
  - CONVULSION [None]
  - FALL [None]
  - HEAD INJURY [None]
  - INSOMNIA [None]
